FAERS Safety Report 9931917 (Version 1)
Quarter: 2014Q1

REPORT INFORMATION
  Report Type: Spontaneous
  Country: US (occurrence: None)
  Receive Date: 20140227
  Receipt Date: 20140227
  Transmission Date: 20141002
  Serious: Yes (Other)
  Sender: FDA-Public Use
  Company Number: None

PATIENT
  Age: 62 Year
  Sex: Female
  Weight: 68.49 kg

DRUGS (7)
  1. CEPHALEXIN [Suspect]
     Indication: ARTHRITIS
     Route: 048
     Dates: start: 20140206, end: 20140206
  2. CEPHALEXIN [Suspect]
     Indication: LIMB OPERATION
     Route: 048
     Dates: start: 20140206, end: 20140206
  3. PREMARIN VAGINAL CREAM [Concomitant]
  4. VITAMIN C [Concomitant]
  5. VITAMIN D [Concomitant]
  6. CALCIUM [Concomitant]
  7. 1 A DAY WOMEN OVER 50 [Concomitant]

REACTIONS (7)
  - Pruritus [None]
  - Pruritus [None]
  - Rash macular [None]
  - Erythema [None]
  - Eye swelling [None]
  - Dyspnoea [None]
  - Swelling face [None]
